FAERS Safety Report 25923556 (Version 1)
Quarter: 2025Q4

REPORT INFORMATION
  Report Type: Report from Study
  Country: CA (occurrence: CA)
  Receive Date: 20251015
  Receipt Date: 20251015
  Transmission Date: 20260118
  Serious: Yes (Other)
  Sender: ABBVIE
  Company Number: CA-ABBVIE-6499118

PATIENT
  Sex: Male

DRUGS (1)
  1. RINVOQ [Suspect]
     Active Substance: UPADACITINIB
     Indication: Crohn^s disease
     Dosage: 08 OCT 2025 DOSE: 15 MG
     Route: 048

REACTIONS (7)
  - Surgery [Unknown]
  - Inflammation [Unknown]
  - Feeling abnormal [Unknown]
  - Dyspepsia [Unknown]
  - Dumping syndrome [Unknown]
  - Gastrointestinal motility disorder [Unknown]
  - Flatulence [Unknown]
